FAERS Safety Report 23836348 (Version 1)
Quarter: 2024Q2

REPORT INFORMATION
  Report Type: Spontaneous
  Country: US (occurrence: US)
  Receive Date: 20240509
  Receipt Date: 20240509
  Transmission Date: 20240716
  Serious: Yes (Hospitalization, Other)
  Sender: FDA-Public Use
  Company Number: US-SANDOZ-SDZ2024US046879

PATIENT

DRUGS (23)
  1. IMATINIB [Suspect]
     Active Substance: IMATINIB
     Indication: Product used for unknown indication
     Dosage: UNK
     Route: 065
  2. IMODIUM [Concomitant]
     Active Substance: LOPERAMIDE HYDROCHLORIDE
     Indication: Diarrhoea
     Dosage: 2 TABLETS, PRN
     Route: 048
     Dates: start: 20230712
  3. ATORVASTATIN [Concomitant]
     Active Substance: ATORVASTATIN
     Indication: Cardiac failure congestive
     Dosage: 20 MG, QD
     Route: 048
     Dates: start: 20230804
  4. APIXABAN [Concomitant]
     Active Substance: APIXABAN
     Indication: Atrial fibrillation
     Dosage: 5 MG, QD
     Route: 065
     Dates: start: 20231226
  5. TRAZODONE [Concomitant]
     Active Substance: TRAZODONE HYDROCHLORIDE
     Indication: Insomnia
     Dosage: 50 MG, QD
     Route: 065
     Dates: start: 20231024
  6. MECLIZINE [Concomitant]
     Active Substance: MECLIZINE HYDROCHLORIDE
     Indication: Vertigo
     Dosage: 25 MG, QD
     Route: 048
     Dates: start: 202401
  7. FUROSEMIDE [Concomitant]
     Active Substance: FUROSEMIDE
     Indication: Cardiac failure congestive
     Dosage: 40 MG, QD
     Route: 048
     Dates: start: 20230125
  8. SPIRONOLACTONE [Concomitant]
     Active Substance: SPIRONOLACTONE
     Indication: Cardiac failure congestive
     Dosage: 50 MG, QD
     Route: 048
     Dates: start: 20221114
  9. SPIRONOLACTONE [Concomitant]
     Active Substance: SPIRONOLACTONE
     Dosage: 25 MG, QD
     Route: 065
     Dates: start: 20240416
  10. AMITRIPTYLINE HYDROCHLORIDE [Concomitant]
     Active Substance: AMITRIPTYLINE HYDROCHLORIDE
     Indication: Hypertension
     Dosage: 25 MG, QD
     Route: 048
     Dates: start: 20110609
  11. AMLODIPINE BESYLATE [Concomitant]
     Active Substance: AMLODIPINE BESYLATE
     Indication: Hypertension
     Dosage: 2.5 MG, QD
     Route: 048
     Dates: start: 201108
  12. ASCORBIC ACID [Concomitant]
     Active Substance: ASCORBIC ACID
     Indication: Supplementation therapy
     Dosage: 500 MG, QD
     Route: 048
     Dates: start: 200706
  13. CALCIUM [Concomitant]
     Active Substance: CALCIUM
     Indication: Supplementation therapy
     Dosage: 1000 MG, QD
     Route: 048
     Dates: start: 201112
  14. HYDROCHLOROTHIAZIDE [Concomitant]
     Active Substance: HYDROCHLOROTHIAZIDE
     Indication: Hypertension
     Dosage: UNK
     Route: 048
     Dates: start: 20170803
  15. VITAMINS [Concomitant]
     Active Substance: VITAMINS
     Indication: Supplementation therapy
     Dosage: 1 CAPSULE
     Route: 048
     Dates: start: 201112
  16. POTASSIUM CHLORIDE [Concomitant]
     Active Substance: POTASSIUM CHLORIDE
     Indication: Electrolyte substitution therapy
     Dosage: 10 MEQ, TID
     Route: 048
     Dates: start: 200906
  17. NAPROXEN SODIUM [Concomitant]
     Active Substance: NAPROXEN\NAPROXEN SODIUM
     Indication: Intervertebral disc degeneration
     Dosage: 440 MG, PRN
     Route: 048
     Dates: start: 20170906
  18. VITAMIN D [Concomitant]
     Active Substance: VITAMIN D NOS
     Indication: Hypertension
     Dosage: 1 TABLET
     Route: 048
     Dates: start: 20180723
  19. TYLENOL [Concomitant]
     Active Substance: ACETAMINOPHEN
     Indication: Arthralgia
     Dosage: 325-650 MG ,PRN
     Route: 048
     Dates: start: 20170906
  20. MELATONIN [Concomitant]
     Active Substance: MELATONIN
     Indication: Insomnia
     Dosage: 3 MG, PRN
     Route: 048
     Dates: start: 20240327
  21. TRAMADOL [Concomitant]
     Active Substance: TRAMADOL\TRAMADOL HYDROCHLORIDE
     Indication: Fibromyalgia
     Dosage: 50 MG, PRN
     Route: 048
     Dates: start: 20240327, end: 20240415
  22. CEFPODOXIME [Concomitant]
     Active Substance: CEFPODOXIME
     Indication: Urinary tract infection
     Dosage: 200 MG, BID
     Route: 048
     Dates: start: 20240315, end: 20240318
  23. HYDRALAZINE [Concomitant]
     Active Substance: HYDRALAZINE HYDROCHLORIDE
     Indication: Cardiac failure congestive
     Dosage: 25 MG, TID
     Route: 048
     Dates: start: 20240321, end: 20240327

REACTIONS (20)
  - Blood loss anaemia [Unknown]
  - Acute kidney injury [Unknown]
  - Upper gastrointestinal haemorrhage [Unknown]
  - Peripheral ischaemia [Unknown]
  - Atrial fibrillation [Unknown]
  - Biliary neoplasm [Unknown]
  - Intervertebral disc degeneration [Unknown]
  - Diarrhoea [Unknown]
  - Skin hyperpigmentation [Unknown]
  - Pain [Unknown]
  - Vertigo [Recovered/Resolved]
  - Periorbital oedema [Unknown]
  - Seasonal allergy [Unknown]
  - Muscular weakness [Unknown]
  - Headache [Unknown]
  - Eye disorder [Unknown]
  - Dyspepsia [Unknown]
  - Myalgia [Unknown]
  - Musculoskeletal disorder [Unknown]
  - Hypertension [Unknown]

NARRATIVE: CASE EVENT DATE: 20130501
